FAERS Safety Report 5011780-9 (Version None)
Quarter: 2006Q2

REPORT INFORMATION
  Report Type: 
  Country: None (occurrence: None)
  Receive Date: 20060524
  Receipt Date: 20060524
  Transmission Date: 20061013
  Serious: Yes (Hospitalization)
  Sender: FDA-Public Use
  Company Number: None

PATIENT
  Age: 20 Month
  Sex: Female
  Weight: 12.2471 kg

DRUGS (1)
  1. ZONSIMIDE GENERIC OF ZONEGRAN 50MG [Suspect]
     Indication: CONVULSION
     Dosage: 50 MG 2 TIMES A DAY PO
     Route: 048
     Dates: start: 20060426, end: 20060520

REACTIONS (3)
  - CONVULSION [None]
  - DRUG DISPENSING ERROR [None]
  - PHARMACEUTICAL PRODUCT COMPLAINT [None]
